FAERS Safety Report 8161707-6 (Version None)
Quarter: 2012Q1

REPORT INFORMATION
  Report Type: 
  Country: None (occurrence: None)
  Receive Date: 20120224
  Receipt Date: 20110523
  Transmission Date: 20120608
  Serious: No
  Sender: FDA-Public Use
  Company Number: US-BRISTOL-MYERS SQUIBB COMPANY-15505340

PATIENT
  Age: 55 Year
  Sex: Male

DRUGS (2)
  1. LANTUS [Suspect]
     Indication: TYPE 2 DIABETES MELLITUS
     Dosage: 1DF=18UNITS2009-2010 24UNIT:2010-ONG
     Route: 058
     Dates: start: 20090101
  2. METFORMIN HCL [Suspect]
     Dates: end: 20110102

REACTIONS (2)
  - RENAL IMPAIRMENT [None]
  - BLOOD GLUCOSE INCREASED [None]
